FAERS Safety Report 20501871 (Version 1)
Quarter: 2022Q1

REPORT INFORMATION
  Report Type: Spontaneous
  Country: FR (occurrence: FR)
  Receive Date: 20220222
  Receipt Date: 20220222
  Transmission Date: 20220423
  Serious: Yes (Other)
  Sender: FDA-Public Use
  Company Number: None

PATIENT
  Age: 18 Year
  Sex: Male

DRUGS (7)
  1. TRAMADOL [Suspect]
     Active Substance: TRAMADOL
     Indication: Product used for unknown indication
     Dosage: NOT SPECIFIED/ START DATE: 2016
     Route: 048
     Dates: end: 2016
  2. DEXTROMETHORPHAN HYDROBROMIDE [Suspect]
     Active Substance: DEXTROMETHORPHAN HYDROBROMIDE
     Indication: Product used for unknown indication
     Dosage: NOT SPECIFIED/ START DATE: 2016
     Route: 048
     Dates: end: 2016
  3. OXYCONTIN [Suspect]
     Active Substance: OXYCODONE HYDROCHLORIDE
     Indication: Product used for unknown indication
     Dosage: NOT SPECIFIED/ START DATE: 2016
     Route: 048
     Dates: end: 2016
  4. MIDOMAFETAMINE [Suspect]
     Active Substance: MIDOMAFETAMINE
     Indication: Product used for unknown indication
     Dosage: UNK UNK, QW (ONCE A WEEK)/ START DATE: 2017
     Route: 065
  5. CANNABIS SATIVA SUBSP. INDICA TOP [Suspect]
     Active Substance: CANNABIS SATIVA SUBSP. INDICA TOP
     Indication: Product used for unknown indication
     Dosage: UNK UNK, QD (EVERY DAY)/2018
     Route: 055
  6. BIETANAUTINE [Suspect]
     Active Substance: BIETANAUTINE
     Indication: Product used for unknown indication
     Dosage: NOT SPECIFIED/2016
     Route: 048
     Dates: end: 2016
  7. COCAINE [Suspect]
     Active Substance: COCAINE
     Indication: Product used for unknown indication
     Dosage: NOT SPECIFIED/ START DATE: 2018
     Route: 045
     Dates: end: 2018

REACTIONS (7)
  - Drug abuse [Not Recovered/Not Resolved]
  - Feeling hot [Recovered/Resolved]
  - Euphoric mood [Recovered/Resolved]
  - Confusional state [Recovered/Resolved]
  - Abdominal pain [Recovered/Resolved]
  - Feeling of relaxation [Recovered/Resolved]
  - Derealisation [Recovered/Resolved]

NARRATIVE: CASE EVENT DATE: 20130101
